FAERS Safety Report 4367188-2 (Version None)
Quarter: 2004Q2

REPORT INFORMATION
  Report Type: 
  Country: None (occurrence: None)
  Receive Date: 20040528
  Receipt Date: 20040322
  Transmission Date: 20050107
  Serious: Yes (Hospitalization)
  Sender: FDA-Public Use
  Company Number: PHFR2004GB01527

PATIENT
  Age: 53 Year
  Sex: Female

DRUGS (5)
  1. PAMIDRONATE DISODIUM [Suspect]
     Indication: HYPERCALCAEMIA
     Dosage: 60MG/ONCE
     Route: 042
  2. ALFACALCIDOL [Concomitant]
     Dosage: 6UG/DAY
     Route: 065
  3. POTASSIUM CHLORIDE [Concomitant]
     Dosage: 40MMOL/L OVER 5HRS
     Route: 065
  4. SODIUM CHLORIDE 0.9% [Concomitant]
     Route: 042
  5. THYROXINE [Concomitant]
     Dosage: 150UG/DAY

REACTIONS (4)
  - BLOOD ALKALINE PHOSPHATASE INCREASED [None]
  - HYPOCALCAEMIA [None]
  - HYPOMAGNESAEMIA [None]
  - TETANY [None]
